FAERS Safety Report 23787283 (Version 1)
Quarter: 2024Q2

REPORT INFORMATION
  Report Type: Spontaneous
  Country: US (occurrence: US)
  Receive Date: 20240426
  Receipt Date: 20240426
  Transmission Date: 20240715
  Serious: Yes (Life-Threatening, Hospitalization, Other)
  Sender: FDA-Public Use
  Company Number: US-MLMSERVICE-20230629-4384954-1

PATIENT

DRUGS (5)
  1. METHYLPREDNISOLONE [Suspect]
     Active Substance: METHYLPREDNISOLONE
     Indication: COVID-19 pneumonia
     Dosage: 1 MG/KG EVERY 12 HOURS
     Route: 065
  2. TOCILIZUMAB [Suspect]
     Active Substance: TOCILIZUMAB
     Indication: COVID-19 pneumonia
     Dosage: 1 DOSAGE FORM, SINGLE
     Route: 065
  3. OXYGEN [Concomitant]
     Active Substance: OXYGEN
     Indication: Oxygen saturation decreased
     Dosage: 4 LITER
     Route: 045
  4. OXYGEN [Concomitant]
     Active Substance: OXYGEN
     Dosage: 6 LITER, INCREASED
     Route: 045
  5. REMDESIVIR [Concomitant]
     Active Substance: REMDESIVIR
     Indication: COVID-19 pneumonia
     Dosage: UNKNOWN
     Route: 065

REACTIONS (10)
  - Gastrointestinal disorder [Unknown]
  - Pelvic abscess [Recovering/Resolving]
  - Enterococcal infection [Unknown]
  - Escherichia infection [Unknown]
  - Pseudomonas infection [Unknown]
  - Streptococcal infection [Unknown]
  - Hepatic cirrhosis [Unknown]
  - Mesenteric haemorrhage [Unknown]
  - Subcutaneous emphysema [Unknown]
  - Intestinal perforation [Recovering/Resolving]
